FAERS Safety Report 14187223 (Version 1)
Quarter: 2017Q4

REPORT INFORMATION
  Report Type: Report from Study
  Country: None (occurrence: BR)
  Receive Date: 20171114
  Receipt Date: 20171114
  Transmission Date: 20180321
  Serious: Yes (Other)
  Sender: FDA-Public Use
  Company Number: BR-ABBVIE-17K-020-2156516-00

PATIENT
  Age: 50 Year
  Sex: Female
  Weight: 90 kg

DRUGS (7)
  1. DIPYRONE [Concomitant]
     Active Substance: DIPYRONE
     Indication: PAIN
  2. BEROTEC [Concomitant]
     Active Substance: FENOTEROL HYDROBROMIDE
     Indication: RHINITIS
  3. HUMIRA [Suspect]
     Active Substance: ADALIMUMAB
     Indication: CROHN^S DISEASE
     Route: 058
     Dates: start: 20160222
  4. TRAMADOL. [Concomitant]
     Active Substance: TRAMADOL
     Indication: PRODUCT USED FOR UNKNOWN INDICATION
  5. LOSARTAN. [Concomitant]
     Active Substance: LOSARTAN
     Indication: HYPERTENSION
  6. NEOSORO [Concomitant]
     Indication: RHINITIS
  7. DIPYRONE [Concomitant]
     Active Substance: DIPYRONE
     Indication: PAIN

REACTIONS (13)
  - Vitamin D decreased [Not Recovered/Not Resolved]
  - Localised oedema [Unknown]
  - Carpal tunnel syndrome [Unknown]
  - Abdominal pain upper [Recovering/Resolving]
  - Nervous system disorder [Unknown]
  - Obesity [Not Recovered/Not Resolved]
  - Vitamin B12 decreased [Not Recovered/Not Resolved]
  - Polyneuropathy [Not Recovered/Not Resolved]
  - Rhinitis [Unknown]
  - Tendon disorder [Unknown]
  - Glaucoma [Unknown]
  - Hypertension [Recovering/Resolving]
  - Ocular hypertension [Unknown]

NARRATIVE: CASE EVENT DATE: 201603
